FAERS Safety Report 15398006 (Version 1)
Quarter: 2018Q3

REPORT INFORMATION
  Report Type: Spontaneous
  Country: US (occurrence: US)
  Receive Date: 20180913
  Receipt Date: 20180913
  Transmission Date: 20181010
  Serious: Yes (Other)
  Sender: FDA-Public Use
  Company Number: None

PATIENT
  Sex: Female

DRUGS (10)
  1. LEVOTHYROXIN 100MCG [Concomitant]
  2. SIMVASTATIN 20MG [Concomitant]
     Active Substance: SIMVASTATIN
  3. LEVOTHYROXIN 125MCG [Concomitant]
  4. FUROSEMIDE 20MG [Concomitant]
     Active Substance: FUROSEMIDE
  5. LUMIGAN [Concomitant]
     Active Substance: BIMATOPROST
  6. MACROBID [Concomitant]
     Active Substance: NITROFURANTOIN\NITROFURANTOIN MONOHYDRATE
  7. LONSURF [Suspect]
     Active Substance: TIPIRACIL HYDROCHLORIDE\TRIFLURIDINE
     Indication: COLON CANCER
     Dosage: ?          OTHER FREQUENCY:5 DAILY;?
     Route: 048
     Dates: start: 20180710
  8. GEMFIBROZIL 600MG [Concomitant]
     Active Substance: GEMFIBROZIL
  9. OMEPRAXOLE 20MG [Concomitant]
  10. METOPROL SUC 100MG [Concomitant]

REACTIONS (2)
  - Therapy cessation [None]
  - Anaemia [None]
